FAERS Safety Report 5768437-6 (Version None)
Quarter: 2008Q2

REPORT INFORMATION
  Report Type: 
  Country: None (occurrence: None)
  Receive Date: 20080612
  Receipt Date: 20080303
  Transmission Date: 20081010
  Serious: No
  Sender: FDA-Public Use
  Company Number: US-ABBOTT-08P-163-0441022-00

PATIENT
  Sex: Male

DRUGS (2)
  1. HUMIRA [Suspect]
     Indication: PSORIASIS
     Dosage: PRE FILLED SYRINGE
     Dates: start: 20070101
  2. HUMIRA [Suspect]
     Dosage: PEN

REACTIONS (1)
  - CONTUSION [None]
